FAERS Safety Report 5092827-0 (Version None)
Quarter: 2006Q3

REPORT INFORMATION
  Report Type: 
  Country: None (occurrence: None)
  Receive Date: 20060727
  Receipt Date: 20060426
  Transmission Date: 20061208
  Serious: Yes (Other)
  Sender: FDA-Public Use
  Company Number: 2006056996

PATIENT
  Sex: Female

DRUGS (11)
  1. LYRICA [Suspect]
     Indication: CONVULSION
     Dosage: 600 MG (200 MG, 3 IN 1 D)
     Dates: start: 20060101
  2. MYSOLINE [Concomitant]
  3. DILAUDID [Concomitant]
  4. LASIX [Concomitant]
  5. KLONOPIN [Concomitant]
  6. PHENOBARBITAL TAB [Concomitant]
  7. ELAVIL [Concomitant]
  8. NEXIUM [Concomitant]
  9. RELAFEN [Concomitant]
  10. ZOLOFT [Concomitant]
  11. ATIVAN [Concomitant]

REACTIONS (1)
  - DRUG SCREEN POSITIVE [None]
